FAERS Safety Report 9042597 (Version 1)
Quarter: 2013Q1

REPORT INFORMATION
  Report Type: Report from Study
  Country: US (occurrence: US)
  Receive Date: 20130129
  Receipt Date: 20130129
  Transmission Date: 20140127
  Serious: No
  Sender: FDA-Public Use
  Company Number: US-ABBOTT-12P-163-0908182-00

PATIENT
  Age: 50 Year
  Sex: Male

DRUGS (9)
  1. HUMIRA 40 MG/0.8 ML PEN [Suspect]
     Indication: PSORIATIC ARTHROPATHY
     Dates: start: 201104
  2. HUMIRA 40 MG/0.8 ML PEN [Suspect]
  3. NITROBID [Concomitant]
     Indication: ANGINA PECTORIS
     Dosage: 2.5 MG DAILY
  4. COUMADIN [Concomitant]
     Indication: ATRIAL FIBRILLATION
  5. VERAPAMIL [Concomitant]
     Indication: ARTERIOSPASM CORONARY
     Dosage: 240 MG DAILY
  6. PLAVIX [Concomitant]
     Indication: ATRIAL FIBRILLATION
     Dosage: 75 MG DAILY
  7. LISINOPRIL [Concomitant]
     Indication: ATRIAL FIBRILLATION
     Dosage: 10 MG DAILY
  8. HYDROCHLOROTHIAZIDE [Concomitant]
     Indication: ATRIAL FIBRILLATION
     Dosage: 25 MG DAILY
  9. SIMVASTATIN [Concomitant]
     Indication: ATRIAL FIBRILLATION

REACTIONS (4)
  - Arthralgia [Not Recovered/Not Resolved]
  - Gout [Not Recovered/Not Resolved]
  - Synovial cyst [Unknown]
  - Arthralgia [Unknown]
